FAERS Safety Report 19239109 (Version 1)
Quarter: 2021Q2

REPORT INFORMATION
  Report Type: Spontaneous
  Country: US (occurrence: US)
  Receive Date: 20210510
  Receipt Date: 20210510
  Transmission Date: 20210717
  Serious: No
  Sender: FDA-Public Use
  Company Number: NVSC2021US099910

PATIENT
  Age: 55 Year
  Sex: Male
  Weight: 50.8 kg

DRUGS (2)
  1. TACROLIMUS SANDOZ [Suspect]
     Active Substance: TACROLIMUS
     Indication: DEMENTIA
     Dosage: 4 MG, Q12H
     Route: 048
     Dates: start: 20210211
  2. TACROLIMUS SANDOZ [Suspect]
     Active Substance: TACROLIMUS
     Dosage: 0.5 MG, Q12H
     Route: 048
     Dates: start: 20210211

REACTIONS (2)
  - Tremor [Recovered/Resolved]
  - Drug level increased [Unknown]

NARRATIVE: CASE EVENT DATE: 20210430
